FAERS Safety Report 7738225-X (Version None)
Quarter: 2011Q3

REPORT INFORMATION
  Report Type: 
  Country: None (occurrence: None)
  Receive Date: 20110908
  Receipt Date: 20110902
  Transmission Date: 20111222
  Serious: Yes (Hospitalization, Congenital Anomaly)
  Sender: FDA-Public Use
  Company Number: FR-PFIZER INC-2009156790

PATIENT
  Sex: Female
  Weight: 1.1 kg

DRUGS (18)
  1. ACETAMINOPHEN [Suspect]
     Route: 064
     Dates: start: 20080303, end: 20080304
  2. VANCOMYCIN [Suspect]
     Route: 064
     Dates: start: 20080227, end: 20080228
  3. ECONAZOLE [Suspect]
     Route: 064
     Dates: start: 20080226, end: 20080303
  4. PLITICAN [Suspect]
     Dosage: UNK, DAILY
     Route: 064
     Dates: start: 20080328, end: 20080330
  5. ACUPAN [Suspect]
     Route: 064
     Dates: start: 20080303, end: 20080310
  6. LEVOFLOXACIN [Suspect]
     Route: 064
     Dates: start: 20080328, end: 20080414
  7. TRAMADOL HCL [Suspect]
     Route: 064
     Dates: start: 20080227, end: 20080227
  8. ALUMINUM HYDROXIDE AND MAGNESIUM TRISILICATE [Suspect]
     Route: 064
     Dates: start: 20080228, end: 20080307
  9. DEBRIDAT [Suspect]
     Route: 064
     Dates: start: 20080307, end: 20080308
  10. IMODIUM [Suspect]
     Dosage: UNK
     Route: 064
     Dates: start: 20080307, end: 20080308
  11. CERUBIDINE [Suspect]
     Route: 064
     Dates: start: 20080220, end: 20080222
  12. SPASFON [Suspect]
     Route: 064
     Dates: start: 20080401, end: 20080405
  13. PRIMPERAN TAB [Suspect]
     Route: 064
     Dates: start: 20080220, end: 20080226
  14. TARGOCID [Suspect]
     Route: 064
     Dates: start: 20080304, end: 20080306
  15. CYTARABINE [Suspect]
     Dosage: UNK
     Route: 064
     Dates: start: 20080220, end: 20080330
  16. ATARAX [Suspect]
     Route: 064
     Dates: start: 20080306, end: 20080306
  17. PIPERACILLIN AND TAZOBACTAM [Suspect]
     Route: 064
     Dates: start: 20080226, end: 20080310
  18. AMIKACIN [Suspect]
     Route: 064
     Dates: start: 20080303, end: 20080304

REACTIONS (8)
  - ANAEMIA [None]
  - NEONATAL RESPIRATORY DISTRESS SYNDROME [None]
  - MATERNAL EXPOSURE DURING PREGNANCY [None]
  - FOETAL ARRHYTHMIA [None]
  - PERIVENTRICULAR LEUKOMALACIA [None]
  - FOETAL GROWTH RESTRICTION [None]
  - PREMATURE BABY [None]
  - JAUNDICE NEONATAL [None]
